FAERS Safety Report 7238145-3 (Version None)
Quarter: 2011Q1

REPORT INFORMATION
  Report Type: 
  Country: None (occurrence: None)
  Receive Date: 20110119
  Receipt Date: 20110119
  Transmission Date: 20110831
  Serious: No
  Sender: FDA-Public Use
  Company Number: None

PATIENT
  Age: 80 Year
  Sex: Male
  Weight: 74.8 kg

DRUGS (2)
  1. EPTIFIBATIDE [Suspect]
     Indication: CORONARY ARTERIAL STENT INSERTION
     Dosage: 12 ML PER HOUR IV
     Route: 042
     Dates: start: 20100914, end: 20100917
  2. ASPIRIN [Suspect]
     Indication: CORONARY ARTERIAL STENT INSERTION
     Dosage: MG EVERY DAY PO
     Route: 048

REACTIONS (3)
  - HAEMORRHAGE [None]
  - FAECES DISCOLOURED [None]
  - EPISTAXIS [None]
